FAERS Safety Report 5671471-8 (Version None)
Quarter: 2008Q1

REPORT INFORMATION
  Report Type: 
  Country: None (occurrence: None)
  Receive Date: 20080318
  Receipt Date: 20080312
  Transmission Date: 20080703
  Serious: Yes (Life-Threatening, Other)
  Sender: FDA-Public Use
  Company Number: GB-BOEHRINGER INGELHEIM GMBH, GERMANY-2008-UK-00862UK

PATIENT
  Age: 74 Year
  Sex: Female
  Weight: 51 kg

DRUGS (20)
  1. DIPYRIDAMOLE [Suspect]
     Indication: TRANSIENT ISCHAEMIC ATTACK
     Dosage: 200MG TWICE DAILY
     Route: 048
     Dates: start: 20071231, end: 20080118
  2. ARAVA [Concomitant]
  3. ASCORBIC ACID [Concomitant]
  4. CEPHALEXIN [Concomitant]
  5. COMBIVENT [Concomitant]
     Route: 055
  6. METHYLPREDNISOLONE ACETATE [Concomitant]
     Dosage: 80MG/M2
  7. DURAGESIC-100 [Concomitant]
     Route: 062
  8. EFFEXOR [Concomitant]
  9. FLUVASTATIN [Concomitant]
  10. FOLIC ACID [Concomitant]
  11. GLYCERYL TRINITRATE [Concomitant]
  12. METFORMIN HYDROCHLORIDE [Concomitant]
  13. METHOTREXATE [Concomitant]
     Dosage: 10MG ONCE A WEEK
  14. PLAVIX [Concomitant]
  15. PREDNISOLONE [Concomitant]
  16. PANTOPRAZOLE SODIUM [Concomitant]
  17. RISEDRONATE SODIUM [Concomitant]
  18. SALBUTAMOL BASE [Concomitant]
     Dosage: 100MCG TWICE AS NECESSARY
     Route: 055
  19. SERETIDE [Concomitant]
     Route: 055
  20. TEMAZEPAM [Concomitant]

REACTIONS (4)
  - HAEMOGLOBIN DECREASED [None]
  - HAEMORRHAGE [None]
  - PLATELET COUNT DECREASED [None]
  - WHITE BLOOD CELL COUNT DECREASED [None]
